FAERS Safety Report 11632000 (Version 2)
Quarter: 2015Q4

REPORT INFORMATION
  Report Type: Report from Study
  Country: US (occurrence: US)
  Receive Date: 20151015
  Receipt Date: 20151028
  Transmission Date: 20160304
  Serious: Yes (Hospitalization, Other)
  Sender: FDA-Public Use
  Company Number: US-TEVA-600937USA

PATIENT
  Age: 43 Year
  Sex: Female
  Weight: 62.5 kg

DRUGS (10)
  1. IRINOTECAN [Suspect]
     Active Substance: IRINOTECAN
     Indication: COLORECTAL CANCER METASTATIC
     Route: 042
  2. DECADRON [Concomitant]
     Active Substance: DEXAMETHASONE
     Indication: VOMITING
  3. ZOFRAN [Concomitant]
     Active Substance: ONDANSETRON HYDROCHLORIDE
     Indication: NAUSEA
     Route: 048
     Dates: start: 20150916
  4. MIRALAX [Concomitant]
     Active Substance: POLYETHYLENE GLYCOL 3350
     Indication: CONSTIPATION
     Route: 048
     Dates: start: 20150821
  5. VIGRAN [Concomitant]
     Indication: ROUTINE HEALTH MAINTENANCE
     Dosage: 1 DOSAGE FORMS DAILY;
     Route: 048
  6. ABT-888 (VELIPARIB) [Suspect]
     Active Substance: VELIPARIB
     Indication: COLORECTAL CANCER METASTATIC
     Route: 048
  7. DECADRON [Concomitant]
     Active Substance: DEXAMETHASONE
     Indication: NAUSEA
     Dosage: DAILY FOR 3 DAYS FOLLOWING CHEMOTHERAPY
     Route: 048
     Dates: start: 20150916
  8. DULCOLAX NOS [Concomitant]
     Active Substance: BISACODYL OR DOCUSATE SODIUM
     Indication: CONSTIPATION
     Route: 054
     Dates: start: 20150514
  9. ZOFRAN [Concomitant]
     Active Substance: ONDANSETRON HYDROCHLORIDE
     Indication: VOMITING
  10. FLUOROURACIL. [Suspect]
     Active Substance: FLUOROURACIL
     Indication: COLORECTAL CANCER METASTATIC
     Route: 042

REACTIONS (2)
  - Nausea [Recovered/Resolved]
  - Vomiting [Unknown]

NARRATIVE: CASE EVENT DATE: 20150917
